FAERS Safety Report 6283332-4 (Version None)
Quarter: 2009Q3

REPORT INFORMATION
  Report Type: 
  Country: None (occurrence: None)
  Receive Date: 20090724
  Receipt Date: 20090714
  Transmission Date: 20100115
  Serious: Yes (Other)
  Sender: FDA-Public Use
  Company Number: US-ABBOTT-09P-163-0585147-00

PATIENT
  Sex: Female
  Weight: 57.204 kg

DRUGS (10)
  1. HUMIRA [Suspect]
     Indication: RHEUMATOID ARTHRITIS
     Route: 058
     Dates: start: 20050101, end: 20090501
  2. HUMIRA [Suspect]
     Route: 058
     Dates: start: 20090703
  3. BENICAR [Concomitant]
     Indication: HYPERTENSION
     Route: 048
  4. MULTI-VITAMIN [Concomitant]
     Indication: VITAMIN SUPPLEMENTATION
     Route: 048
  5. VITAMIN B-12 [Concomitant]
     Indication: VITAMIN SUPPLEMENTATION
     Route: 048
  6. ALIGN [Concomitant]
     Indication: DYSPEPSIA
  7. ALIGN [Concomitant]
     Indication: MICTURITION URGENCY
  8. NUTRI-JOINT [Concomitant]
     Indication: VITAMIN SUPPLEMENTATION
     Route: 048
  9. TYLENOL (CAPLET) [Concomitant]
     Indication: PAIN
     Route: 048
  10. DARVOCET-N 100 [Concomitant]
     Indication: ARTHRALGIA
     Route: 048

REACTIONS (5)
  - NEOPLASM MALIGNANT [None]
  - RASH MACULAR [None]
  - RHEUMATOID ARTHRITIS [None]
  - SCLERODERMA [None]
  - SKIN LESION [None]
